FAERS Safety Report 9782992 (Version 1)
Quarter: 2013Q4

REPORT INFORMATION
  Report Type: Spontaneous
  Country: FR (occurrence: FR)
  Receive Date: 20131226
  Receipt Date: 20131226
  Transmission Date: 20140711
  Serious: Yes (Hospitalization)
  Sender: FDA-Public Use
  Company Number: FR-SA-2013SA131522

PATIENT
  Age: 53 Year
  Sex: Female

DRUGS (2)
  1. TAXOTERE [Suspect]
     Indication: BREAST CANCER
     Route: 065
  2. TAXOTERE [Suspect]
     Indication: BREAST CANCER
     Route: 042
     Dates: start: 20131206, end: 20131206

REACTIONS (3)
  - Dyspraxia [Not Recovered/Not Resolved]
  - Encephalitis [Not Recovered/Not Resolved]
  - Mutism [Not Recovered/Not Resolved]
